FAERS Safety Report 9952225 (Version 1)
Quarter: 2014Q1

REPORT INFORMATION
  Report Type: Report from Study
  Country: US (occurrence: US)
  Receive Date: 20140304
  Receipt Date: 20140304
  Transmission Date: 20141002
  Serious: No
  Sender: FDA-Public Use
  Company Number: US-ABBVIE-13P-163-1070493-00

PATIENT
  Age: 48 Year
  Sex: Female
  Weight: 53.57 kg

DRUGS (1)
  1. HUMIRA [Suspect]
     Indication: PSORIASIS
     Dates: start: 20130219

REACTIONS (4)
  - Abdominal distension [Unknown]
  - Hepatic steatosis [Not Recovered/Not Resolved]
  - Bowel movement irregularity [Unknown]
  - Bowel movement irregularity [Unknown]
